FAERS Safety Report 25432920 (Version 1)
Quarter: 2025Q2

REPORT INFORMATION
  Report Type: Spontaneous
  Country: US (occurrence: None)
  Receive Date: 20250613
  Receipt Date: 20250613
  Transmission Date: 20250716
  Serious: No
  Sender: MDD OPERATIONS
  Company Number: US-MDD US Operations-MDD202410-004016

PATIENT
  Age: 63 Year
  Sex: Male

DRUGS (2)
  1. APOKYN [Suspect]
     Active Substance: APOMORPHINE HYDROCHLORIDE
     Indication: Parkinson^s disease
     Route: 058
     Dates: start: 20241004
  2. APOKYN [Suspect]
     Active Substance: APOMORPHINE HYDROCHLORIDE
     Dosage: 3ML CARTRIDGE PAP
     Route: 058

REACTIONS (3)
  - Unresponsive to stimuli [Recovered/Resolved]
  - Loss of consciousness [Recovered/Resolved]
  - Product packaging quantity issue [Unknown]

NARRATIVE: CASE EVENT DATE: 20241018
